FAERS Safety Report 10480285 (Version 3)
Quarter: 2015Q3

REPORT INFORMATION
  Report Type: Spontaneous
  Country: US (occurrence: US)
  Receive Date: 20140929
  Receipt Date: 20150702
  Transmission Date: 20151125
  Serious: Yes (Death, Life-Threatening, Hospitalization, Disabling, Other)
  Sender: FDA-Public Use
  Company Number: US-MERCK-1409USA012717

PATIENT
  Sex: Male
  Weight: 149.66 kg

DRUGS (3)
  1. JANUVIA [Suspect]
     Active Substance: SITAGLIPTIN PHOSPHATE
     Indication: TYPE 2 DIABETES MELLITUS
     Dosage: UNK, QD
     Route: 048
     Dates: start: 20070101, end: 20070223
  2. BYETTA [Suspect]
     Active Substance: EXENATIDE
     Indication: TYPE 2 DIABETES MELLITUS
     Dosage: 5 MICROGRAM, BID
     Dates: start: 20051123, end: 20051223
  3. BYETTA [Suspect]
     Active Substance: EXENATIDE
     Dosage: 5 MICROGRAM, BID
     Dates: start: 20070223, end: 20080629

REACTIONS (20)
  - Joint arthroplasty [Unknown]
  - Diabetic nephropathy [Unknown]
  - Metastases to lymph nodes [Unknown]
  - White blood cell count abnormal [Unknown]
  - Cholecystitis chronic [Unknown]
  - Pancreaticoduodenectomy [Unknown]
  - Radiotherapy [Unknown]
  - Hyperlipidaemia [Unknown]
  - Myocardial ischaemia [Unknown]
  - Clostridium difficile infection [Unknown]
  - Pancreatitis [Unknown]
  - Stent placement [Unknown]
  - Rotator cuff repair [Unknown]
  - Pancreatic carcinoma metastatic [Fatal]
  - Bile duct stent insertion [Unknown]
  - Rotator cuff syndrome [Unknown]
  - Diabetes mellitus inadequate control [Unknown]
  - Diabetic neuropathy [Unknown]
  - Cholesterosis [Unknown]
  - Gallbladder polyp [Unknown]

NARRATIVE: CASE EVENT DATE: 2008
